FAERS Safety Report 19367736 (Version 1)
Quarter: 2021Q2

REPORT INFORMATION
  Report Type: Spontaneous
  Country: DE (occurrence: DE)
  Receive Date: 20210603
  Receipt Date: 20210603
  Transmission Date: 20210717
  Serious: Yes (Other)
  Sender: FDA-Public Use
  Company Number: DE-GW PHARMA-202105DEGW02663

PATIENT

DRUGS (10)
  1. CLOBAZAM. [Concomitant]
     Active Substance: CLOBAZAM
     Dosage: 0.5 MILLIGRAM/KILOGRAM, BID
     Route: 065
  2. CLOBAZAM. [Concomitant]
     Active Substance: CLOBAZAM
     Dosage: 0.5 MILLIGRAM
     Route: 065
  3. EPIDYOLEX [Suspect]
     Active Substance: CANNABIDIOL
     Indication: SEVERE MYOCLONIC EPILEPSY OF INFANCY
     Dosage: 3 MILLIGRAM/KILOGRAM, TID
     Route: 065
  4. EPIDYOLEX [Suspect]
     Active Substance: CANNABIDIOL
     Dosage: 8.5 MILLIGRAM/KILOGRAM, QD
     Route: 065
  5. VALPROATE [Concomitant]
     Active Substance: VALPROIC ACID
     Indication: SEIZURE
     Dosage: 2.5 MILLIGRAM, BID
     Route: 065
  6. VALPROATE [Concomitant]
     Active Substance: VALPROIC ACID
     Dosage: 10 MILLIGRAM/KILOGRAM BW
     Route: 065
  7. POTASSIUM BROMIDE [Concomitant]
     Active Substance: POTASSIUM BROMIDE
     Dosage: 22 MILIGRAM/KILOGRAM BW
     Route: 065
  8. CLOBAZAM. [Concomitant]
     Active Substance: CLOBAZAM
     Indication: SEIZURE
     Dosage: 2.5 MILLIGRAM, BID
     Route: 065
  9. CLOBAZAM. [Concomitant]
     Active Substance: CLOBAZAM
     Dosage: 0.2 MILLIGRAM/KILOGRAM, BID
     Route: 065
  10. POTASSIUM BROMIDE [Concomitant]
     Active Substance: POTASSIUM BROMIDE
     Indication: SEIZURE
     Dosage: 20 MILLIGRAM/KILOGRAM, BID
     Route: 065

REACTIONS (2)
  - Fatigue [Recovering/Resolving]
  - Drug level increased [Recovering/Resolving]
